FAERS Safety Report 5161703-7 (Version None)
Quarter: 2006Q4

REPORT INFORMATION
  Report Type: 
  Country: None (occurrence: None)
  Receive Date: 20061130
  Receipt Date: 20060919
  Transmission Date: 20070319
  Serious: No
  Sender: FDA-Public Use
  Company Number: US-BRISTOL-MYERS SQUIBB COMPANY-13514542

PATIENT
  Age: 65 Year
  Sex: Male
  Weight: 119 kg

DRUGS (6)
  1. GLUCOPHAGE XR [Suspect]
     Indication: DIABETES MELLITUS
     Route: 048
     Dates: start: 19970101, end: 20060917
  2. OMEPRAZOLE [Concomitant]
     Dates: end: 20060801
  3. STARLIX [Concomitant]
     Dates: end: 20060801
  4. ZOCOR [Concomitant]
     Dates: end: 20060801
  5. ALLOPURINOL [Concomitant]
     Dates: end: 20060801
  6. DIOVAN [Concomitant]
     Dates: end: 20060801

REACTIONS (1)
  - DIARRHOEA [None]
